FAERS Safety Report 4262930-3 (Version None)
Quarter: 2004Q1

REPORT INFORMATION
  Report Type: 
  Country: None (occurrence: None)
  Receive Date: 20040102
  Receipt Date: 20040102
  Transmission Date: 20041129
  Serious: Yes (Other)
  Sender: FDA-Public Use
  Company Number: None

PATIENT
  Age: 50 Year
  Sex: Female
  Weight: 65.7716 kg

DRUGS (2)
  1. ZOLOFT [Suspect]
     Indication: DEPRESSION
     Dosage: 1 PER DAY BUCCAL
     Route: 002
     Dates: start: 19970101, end: 20031220
  2. SYNTHROID [Concomitant]

REACTIONS (8)
  - ABDOMINAL DISTENSION [None]
  - BREAST ENGORGEMENT [None]
  - CRYING [None]
  - EYE SWELLING [None]
  - MOOD SWINGS [None]
  - OEDEMA PERIPHERAL [None]
  - SLEEP DISORDER [None]
  - SUICIDAL IDEATION [None]
